FAERS Safety Report 7202059 (Version 3)
Quarter: 2019Q2

REPORT INFORMATION
  Report Type: Spontaneous
  Country: FR (occurrence: FR)
  Receive Date: 20091207
  Receipt Date: 20190611
  Transmission Date: 20190711
  Serious: Yes (Hospitalization)
  Sender: FDA-Public Use
  Company Number: FR-SANOFI-AVENTIS-2009SA001240

PATIENT
  Age: 79 Year
  Sex: Male

DRUGS (6)
  1. OROKEN [Suspect]
     Active Substance: CEFIXIME
     Indication: PHARYNGITIS BACTERIAL
     Dosage: 200 MG,QD
     Route: 048
     Dates: start: 20090915, end: 20090919
  2. OROKEN [Suspect]
     Active Substance: CEFIXIME
     Indication: TONSILLITIS
  3. TAHOR [Concomitant]
     Active Substance: ATORVASTATIN CALCIUM
     Indication: PRODUCT USED FOR UNKNOWN INDICATION
     Dosage: UNK UNK,UNK
     Route: 048
  4. ALTEISDUO [Concomitant]
     Active Substance: HYDROCHLOROTHIAZIDE\OLMESARTAN MEDOXOMIL
     Indication: PRODUCT USED FOR UNKNOWN INDICATION
     Dosage: UNK UNK,UNK
     Route: 048
  5. ZYLORIC [Concomitant]
     Active Substance: ALLOPURINOL
     Indication: PRODUCT USED FOR UNKNOWN INDICATION
     Dosage: UNK
     Route: 048
  6. PLAVIX [Suspect]
     Active Substance: CLOPIDOGREL BISULFATE
     Indication: PRODUCT USED FOR UNKNOWN INDICATION
     Dosage: 75 MG,QD
     Route: 048
     Dates: start: 20090910, end: 20090920

REACTIONS (3)
  - Acquired haemophilia [Recovered/Resolved]
  - Subcutaneous haematoma [Unknown]
  - Anaemia [Unknown]

NARRATIVE: CASE EVENT DATE: 20090920
